FAERS Safety Report 23230407 (Version 1)
Quarter: 2023Q4

REPORT INFORMATION
  Report Type: Spontaneous
  Country: US (occurrence: US)
  Receive Date: 20231127
  Receipt Date: 20231127
  Transmission Date: 20240109
  Serious: Yes (Hospitalization, Other)
  Sender: FDA-Public Use
  Company Number: US-SANDOZ-SDZ2023US058024

PATIENT
  Age: 43 Year
  Sex: Male

DRUGS (1)
  1. OLANZAPINE [Suspect]
     Active Substance: OLANZAPINE
     Indication: Bipolar disorder
     Dosage: 35 MG, QD (INCREASED ONE MONTH PRIOR TO HOSPITAL ADMISSION)
     Route: 065

REACTIONS (3)
  - Pancreatitis acute [Unknown]
  - Diabetic ketoacidosis [Recovering/Resolving]
  - Hypertriglyceridaemia [Unknown]
